FAERS Safety Report 6746398-0 (Version None)
Quarter: 2010Q2

REPORT INFORMATION
  Report Type: 
  Country: None (occurrence: None)
  Receive Date: 20100528
  Receipt Date: 20091208
  Transmission Date: 20101027
  Serious: Yes (Hospitalization, Other)
  Sender: FDA-Public Use
  Company Number: A0810813A

PATIENT
  Age: 10 Year
  Sex: Male
  Weight: 26.8 kg

DRUGS (9)
  1. FLOLAN [Suspect]
     Dosage: 64NGKM UNKNOWN
     Route: 042
     Dates: start: 20081014
  2. SILDENAFIL [Concomitant]
     Indication: PULMONARY ARTERIAL HYPERTENSION
     Dosage: 30MG THREE TIMES PER DAY
     Route: 048
     Dates: start: 20080801
  3. DIGOXIN [Concomitant]
     Indication: PULMONARY ARTERIAL HYPERTENSION
     Dosage: .125MG PER DAY
     Route: 048
     Dates: start: 20080801
  4. LASIX [Concomitant]
     Indication: PULMONARY ARTERIAL HYPERTENSION
     Dosage: 30MG TWICE PER DAY
     Route: 048
  5. SPIRONOLACTONE [Concomitant]
     Indication: PULMONARY ARTERIAL HYPERTENSION
     Dosage: 25MG TWICE PER DAY
     Route: 048
  6. PREDNISONE TAB [Concomitant]
     Dosage: 18MG PER DAY
     Route: 048
  7. PREVACID [Concomitant]
     Dosage: 15MG PER DAY
     Route: 048
  8. CYCLOSPORINE [Concomitant]
     Dosage: 80MG TWICE PER DAY
     Route: 048
  9. COUMADIN [Concomitant]
     Indication: PULMONARY ARTERIAL HYPERTENSION
     Dosage: .5MG PER DAY
     Route: 048
     Dates: start: 20080901

REACTIONS (1)
  - PLATELET COUNT DECREASED [None]
